FAERS Safety Report 6232856-4 (Version None)
Quarter: 2009Q2

REPORT INFORMATION
  Report Type: 
  Country: None (occurrence: None)
  Receive Date: 20090617
  Receipt Date: 20081211
  Transmission Date: 20091009
  Serious: No
  Sender: FDA-Public Use
  Company Number: US-ASTRAZENECA-2008UW24798

PATIENT
  Age: 63 Year
  Sex: Female
  Weight: 64.4 kg

DRUGS (3)
  1. FASLODEX [Suspect]
     Indication: BREAST CANCER
     Dosage: 260 MG/5CC, MONTHLY
     Route: 030
     Dates: start: 20081105, end: 20081105
  2. PREDNISONE [Concomitant]
  3. SYNTHROID [Concomitant]

REACTIONS (4)
  - DIZZINESS [None]
  - NAUSEA [None]
  - PAIN IN JAW [None]
  - PRODUCT TASTE ABNORMAL [None]
